FAERS Safety Report 17924737 (Version 1)
Quarter: 2020Q2

REPORT INFORMATION
  Report Type: Report from Study
  Country: FR (occurrence: FR)
  Receive Date: 20200622
  Receipt Date: 20200622
  Transmission Date: 20200714
  Serious: Yes (Other)
  Sender: FDA-Public Use
  Company Number: FR-ASTELLAS-2020US020936

PATIENT
  Age: 54 Year
  Sex: Female
  Weight: 65 kg

DRUGS (2)
  1. TACROLIMUS. [Suspect]
     Active Substance: TACROLIMUS
     Indication: RENAL TRANSPLANT
     Dosage: 5.50 UNITS NOT REPORTED, ONCE DAILY
     Route: 065
     Dates: start: 20181218
  2. TACROLIMUS. [Suspect]
     Active Substance: TACROLIMUS
     Dosage: 5.00 UNITS NOT REPORTED, ONCE DAILY
     Route: 065
     Dates: start: 20190615

REACTIONS (3)
  - Urinary bladder adenoma [Not Recovered/Not Resolved]
  - Urinary bladder adenoma [Recovered/Resolved]
  - Disease recurrence [Not Recovered/Not Resolved]

NARRATIVE: CASE EVENT DATE: 20190114
